FAERS Safety Report 5578201-9 (Version None)
Quarter: 2007Q4

REPORT INFORMATION
  Report Type: 
  Country: None (occurrence: None)
  Receive Date: 20071231
  Receipt Date: 20071219
  Transmission Date: 20080405
  Serious: Yes (Other)
  Sender: FDA-Public Use
  Company Number: DE-PFIZER INC-2007071183

PATIENT
  Sex: Female
  Weight: 90 kg

DRUGS (2)
  1. AROMASIN [Suspect]
     Indication: BREAST CANCER
     Route: 048
     Dates: start: 20070601, end: 20071001
  2. ENANTONE [Concomitant]

REACTIONS (9)
  - ARTHRALGIA [None]
  - BONE PAIN [None]
  - BREAST PAIN [None]
  - FATIGUE [None]
  - GALACTORRHOEA [None]
  - MIGRAINE [None]
  - RASH [None]
  - RENAL FAILURE [None]
  - WEIGHT INCREASED [None]
